FAERS Safety Report 9867350 (Version 1)
Quarter: 2014Q1

REPORT INFORMATION
  Report Type: Spontaneous
  Country: US (occurrence: None)
  Receive Date: 20140131
  Receipt Date: 20140131
  Transmission Date: 20141002
  Serious: Yes (Death)
  Sender: FDA-Public Use
  Company Number: 2014AP000612

PATIENT
  Age: 39 Year
  Sex: Female

DRUGS (5)
  1. ZOLPIDEM TARTRATE [Suspect]
     Dosage: ; PO
     Route: 048
  2. TIZANIDINE HYDROCHLORIDE TABLETS [Suspect]
  3. CITALOPRAM HYDROBROMIDE TABLETS [Suspect]
     Dosage: ; PO
     Route: 048
  4. CLONAZEPAM TABLETS, USP [Suspect]
     Dosage: ; PO
     Route: 048
  5. METHOCARBAMOL [Suspect]
     Dosage: ; PO
     Route: 048

REACTIONS (2)
  - Completed suicide [None]
  - Cardio-respiratory arrest [None]
